FAERS Safety Report 9400384 (Version 1)
Quarter: 2013Q3

REPORT INFORMATION
  Report Type: Spontaneous
  Country: IT (occurrence: FR)
  Receive Date: 20130715
  Receipt Date: 20130715
  Transmission Date: 20140515
  Serious: Yes (Hospitalization)
  Sender: FDA-Public Use
  Company Number: FR-FRI-1000046646

PATIENT
  Age: 55 Year
  Sex: Female

DRUGS (5)
  1. NEBIVOLOL [Suspect]
     Dosage: 2.5 MG
     Route: 048
  2. HUMEX COLD [Suspect]
     Route: 048
     Dates: end: 2013
  3. ATROVENT [Suspect]
  4. BRICANYL [Suspect]
  5. ALDACTONE [Suspect]
     Dosage: 25 MG
     Route: 048

REACTIONS (2)
  - Drug hypersensitivity [Recovered/Resolved]
  - Erythema [Recovered/Resolved]
